FAERS Safety Report 17085610 (Version 2)
Quarter: 2019Q4

REPORT INFORMATION
  Report Type: Report from Study
  Country: US (occurrence: US)
  Receive Date: 20191128
  Receipt Date: 20191213
  Transmission Date: 20200122
  Serious: No
  Sender: FDA-Public Use
  Company Number: NVSC2019US051214

PATIENT
  Sex: Male

DRUGS (1)
  1. ENTRESTO [Suspect]
     Active Substance: SACUBITRIL\VALSARTAN
     Indication: CARDIAC FAILURE CONGESTIVE
     Dosage: UNK, BID
     Route: 065
     Dates: start: 2016

REACTIONS (5)
  - Memory impairment [Unknown]
  - Wrong technique in product usage process [Unknown]
  - Confusional state [Unknown]
  - Peripheral swelling [Unknown]
  - Underdose [Unknown]

NARRATIVE: CASE EVENT DATE: 2018
